FAERS Safety Report 23793680 (Version 1)
Quarter: 2024Q2

REPORT INFORMATION
  Report Type: Spontaneous
  Country: US (occurrence: None)
  Receive Date: 20240426
  Receipt Date: 20240426
  Transmission Date: 20240716
  Serious: Yes (Hospitalization)
  Sender: FDA-Public Use
  Company Number: None

PATIENT
  Age: 41 Year
  Sex: Female
  Weight: 68 kg

DRUGS (1)
  1. CYTARABINE [Suspect]
     Active Substance: CYTARABINE
     Dates: end: 20240127

REACTIONS (20)
  - Nausea [None]
  - Vomiting [None]
  - Abdominal pain [None]
  - Pancreatitis acute [None]
  - Dyspnoea [None]
  - Pleural effusion [None]
  - Hypoaesthesia [None]
  - Hypoaesthesia [None]
  - Vasculitis [None]
  - Aneurysm [None]
  - Lymphadenopathy [None]
  - Paraesthesia [None]
  - Thrombocytopenia [None]
  - Pericardial effusion [None]
  - Pyrexia [None]
  - Tachycardia [None]
  - Sepsis [None]
  - Mental status changes [None]
  - Respiratory failure [None]
  - Pancreatitis necrotising [None]

NARRATIVE: CASE EVENT DATE: 20240218
